FAERS Safety Report 9641937 (Version 1)
Quarter: 2013Q4

REPORT INFORMATION
  Report Type: Spontaneous
  Country: US (occurrence: US)
  Receive Date: 20131023
  Receipt Date: 20131023
  Transmission Date: 20140711
  Serious: Yes (Other)
  Sender: FDA-Public Use
  Company Number: US-PFIZER INC-2013300410

PATIENT
  Age: 62 Year
  Sex: Female
  Weight: 73.02 kg

DRUGS (5)
  1. SKELAXIN [Suspect]
     Indication: MUSCLE SPASMS
     Dosage: 800 MG, AS NEEDED
     Route: 048
  2. COZAAR [Concomitant]
     Indication: HYPERTENSION
     Dosage: UNK
  3. MS CONTIN [Concomitant]
     Indication: ARTHRALGIA
     Dosage: 15 MG, 3X/DAY
  4. WELLBUTRIN [Concomitant]
     Dosage: 75 MG, UNK
  5. BUSPAR [Concomitant]
     Dosage: 5 MG, 3X/DAY

REACTIONS (1)
  - Systemic lupus erythematosus [Unknown]
